FAERS Safety Report 10952824 (Version 1)
Quarter: 2015Q1

REPORT INFORMATION
  Report Type: Spontaneous
  Country: AU (occurrence: AU)
  Receive Date: 20150325
  Receipt Date: 20150325
  Transmission Date: 20150721
  Serious: Yes (Other)
  Sender: FDA-Public Use
  Company Number: AU-PFIZER INC-2015104369

PATIENT
  Sex: Female

DRUGS (3)
  1. PRISTIQ EXTENDED RELEASE [Suspect]
     Active Substance: DESVENLAFAXINE SUCCINATE
     Dosage: 50 MG, DAILY
  2. PRISTIQ EXTENDED RELEASE [Suspect]
     Active Substance: DESVENLAFAXINE SUCCINATE
     Dosage: UNK
  3. PRISTIQ EXTENDED RELEASE [Suspect]
     Active Substance: DESVENLAFAXINE SUCCINATE
     Dosage: 100 MG, UNK

REACTIONS (15)
  - Weight increased [Unknown]
  - Blindness [Unknown]
  - Libido decreased [Unknown]
  - Fatigue [Unknown]
  - Vision blurred [Unknown]
  - Decreased appetite [Unknown]
  - Nausea [Unknown]
  - Visual impairment [Unknown]
  - Headache [Unknown]
  - Depressed mood [Unknown]
  - Yawning [Unknown]
  - Confusional state [Unknown]
  - Insomnia [Unknown]
  - Tinnitus [Unknown]
  - Decreased interest [Unknown]
